FAERS Safety Report 20937593 (Version 1)
Quarter: 2022Q2

REPORT INFORMATION
  Report Type: Spontaneous
  Country: US (occurrence: None)
  Receive Date: 20220608
  Receipt Date: 20220608
  Transmission Date: 20220721
  Serious: No
  Sender: FDA-Public Use
  Company Number: None

PATIENT
  Age: 40 Year
  Sex: Female
  Weight: 55.8 kg

DRUGS (1)
  1. PAXLOVID [Suspect]
     Active Substance: NIRMATRELVIR\RITONAVIR
     Indication: COVID-19
     Dosage: FREQUENCY : TWICE A DAY;?
     Route: 048
     Dates: start: 20220604, end: 20220606

REACTIONS (8)
  - Dysgeusia [None]
  - Abdominal discomfort [None]
  - Diarrhoea [None]
  - Nausea [None]
  - Abdominal distension [None]
  - Chest pain [None]
  - Palpitations [None]
  - Urticaria [None]

NARRATIVE: CASE EVENT DATE: 20220604
